FAERS Safety Report 9528984 (Version 2)
Quarter: 2013Q3

REPORT INFORMATION
  Report Type: Spontaneous
  Country: JP (occurrence: JP)
  Receive Date: 20130917
  Receipt Date: 20130917
  Transmission Date: 20140515
  Serious: Yes (Other)
  Sender: FDA-Public Use
  Company Number: JP-PFIZER INC-2013255104

PATIENT
  Age: 48 Year
  Sex: Male
  Weight: 76 kg

DRUGS (4)
  1. OXALIPLATIN [Suspect]
     Indication: COLON CANCER
     Dosage: UNK
     Dates: start: 200903
  2. FLUOROURACIL [Suspect]
     Indication: COLON CANCER
     Dosage: UNK
     Dates: start: 200903
  3. LEUCOVORIN [Suspect]
     Indication: COLON CANCER
     Dosage: UNK
     Dates: start: 200903
  4. BEVACIZUMAB [Suspect]
     Indication: COLON CANCER
     Dosage: UNK
     Dates: start: 200903

REACTIONS (1)
  - Mesenteric venous occlusion [Unknown]
